FAERS Safety Report 24662854 (Version 2)
Quarter: 2024Q4

REPORT INFORMATION
  Report Type: Spontaneous
  Country: GB (occurrence: None)
  Receive Date: 20241126
  Receipt Date: 20241211
  Transmission Date: 20250115
  Serious: Yes (Hospitalization)
  Sender: MDD OPERATIONS
  Company Number: GB-MDD US Operations-MDD202411-004351

PATIENT
  Age: 78 Year
  Sex: Male

DRUGS (7)
  1. APOMORPHINE HYDROCHLORIDE [Suspect]
     Active Substance: APOMORPHINE HYDROCHLORIDE
     Indication: Parkinson^s disease
     Route: 058
     Dates: start: 20240729
  2. APOMORPHINE HYDROCHLORIDE [Suspect]
     Active Substance: APOMORPHINE HYDROCHLORIDE
     Route: 058
  3. ROPINIROLE [Concomitant]
     Active Substance: ROPINIROLE
     Dosage: NOT PROVIDED
  4. SINEMET [Concomitant]
     Active Substance: CARBIDOPA\LEVODOPA
     Dosage: NOT PROVIDED
  5. SINEMET [Concomitant]
     Active Substance: CARBIDOPA\LEVODOPA
     Dosage: HALF A TABLET
  6. OPICAPONE [Concomitant]
     Active Substance: OPICAPONE
     Dosage: NOT PROVIDED
  7. Half sinemet [Concomitant]
     Dosage: 125MG

REACTIONS (7)
  - Cognitive disorder [Unknown]
  - Fall [Unknown]
  - Confusional state [Unknown]
  - Paranoia [Unknown]
  - Feeling abnormal [Unknown]
  - Pain [Unknown]
  - Hallucination [Unknown]
